FAERS Safety Report 17972739 (Version 1)
Quarter: 2020Q3

REPORT INFORMATION
  Report Type: Spontaneous
  Country: US (occurrence: US)
  Receive Date: 20200701
  Receipt Date: 20200701
  Transmission Date: 20201103
  Serious: Yes (Other)
  Sender: FDA-Public Use
  Company Number: None

PATIENT
  Age: 80 Year
  Sex: Female

DRUGS (7)
  1. GABAPENTIN 100MG [Concomitant]
     Active Substance: GABAPENTIN
  2. LOSARTAN 25MG [Concomitant]
     Active Substance: LOSARTAN
  3. TIZANIDINE 4MG [Concomitant]
     Active Substance: TIZANIDINE
  4. BUSPIRONE 7.5MG [Concomitant]
  5. ESCITALOPRAM 10MG [Concomitant]
     Active Substance: ESCITALOPRAM OXALATE
  6. PROLIA [Suspect]
     Active Substance: DENOSUMAB
     Indication: OSTEOPOROSIS
     Dosage: ?          OTHER FREQUENCY:EVERY 6 MONTHS;?
     Route: 058
     Dates: start: 20190307
  7. LEVOTHYROXINE 0.075MG [Concomitant]

REACTIONS (1)
  - Breast cancer [None]

NARRATIVE: CASE EVENT DATE: 20200629
